FAERS Safety Report 22149987 (Version 1)
Quarter: 2023Q1

REPORT INFORMATION
  Report Type: Report from Study
  Country: CN (occurrence: CN)
  Receive Date: 20230329
  Receipt Date: 20230329
  Transmission Date: 20230418
  Serious: Yes (Hospitalization)
  Sender: FDA-Public Use
  Company Number: CN-BEIGENE AUS PTY LTD-BGN-2023-002193

PATIENT
  Age: 46 Year
  Sex: Female
  Weight: 51 kg

DRUGS (12)
  1. TISLELIZUMAB [Suspect]
     Active Substance: TISLELIZUMAB
     Indication: Cervix carcinoma
     Dosage: 200 MG
     Route: 065
     Dates: start: 20221205
  2. TISLELIZUMAB [Suspect]
     Active Substance: TISLELIZUMAB
     Dosage: 200 MG
     Route: 065
     Dates: start: 20230109
  3. TISLELIZUMAB [Suspect]
     Active Substance: TISLELIZUMAB
     Dosage: 200 MG
     Route: 065
     Dates: start: 20230201
  4. TISLELIZUMAB [Suspect]
     Active Substance: TISLELIZUMAB
     Dosage: 200 MG
     Route: 065
     Dates: start: 20230222
  5. PACLITAXEL [Suspect]
     Active Substance: PACLITAXEL
     Indication: Cervix carcinoma
     Dosage: 240 MG
     Route: 065
     Dates: start: 20230109
  6. PACLITAXEL [Suspect]
     Active Substance: PACLITAXEL
     Dosage: 255 MG
     Route: 065
     Dates: start: 20230201
  7. PACLITAXEL [Suspect]
     Active Substance: PACLITAXEL
     Dosage: 259 MG
     Route: 065
     Dates: start: 20230222
  8. BEVACIZUMAB [Suspect]
     Active Substance: BEVACIZUMAB
     Indication: Cervix carcinoma
     Dosage: 390 MG
     Route: 065
     Dates: start: 20221205
  9. BEVACIZUMAB [Suspect]
     Active Substance: BEVACIZUMAB
     Dosage: 382 MG
     Route: 065
     Dates: start: 20230109
  10. BEVACIZUMAB [Suspect]
     Active Substance: BEVACIZUMAB
     Dosage: 375 MG
     Route: 065
     Dates: start: 20230201
  11. BEVACIZUMAB [Suspect]
     Active Substance: BEVACIZUMAB
     Dosage: 382 MG
     Route: 065
     Dates: start: 20230222
  12. RECOMBINANT HUMAN GRANULOCYTE COLONY STIMULAT [Concomitant]
     Indication: Anaemia
     Dosage: 200 UG, QD
     Route: 065

REACTIONS (2)
  - Haemoglobin decreased [Recovered/Resolved]
  - Platelet count decreased [Recovered/Resolved]

NARRATIVE: CASE EVENT DATE: 20230309
